FAERS Safety Report 4995017-2 (Version None)
Quarter: 2006Q2

REPORT INFORMATION
  Report Type: 
  Country: None (occurrence: None)
  Receive Date: 20060508
  Receipt Date: 20060331
  Transmission Date: 20061013
  Serious: Yes (Hospitalization)
  Sender: FDA-Public Use
  Company Number: US-GLAXOSMITHKLINE-A0599956A

PATIENT
  Age: 56 Year
  Sex: Male
  Weight: 115.9 kg

DRUGS (2)
  1. DUTASTERIDE [Suspect]
     Indication: PROSTATE CANCER
     Dosage: .5MG PER DAY
     Route: 048
     Dates: start: 20040918
  2. VIOXX [Concomitant]
     Indication: ARTHRITIS
     Dosage: 12.5MG PER DAY
     Route: 048
     Dates: start: 20040701

REACTIONS (4)
  - DEEP VEIN THROMBOSIS [None]
  - DYSPNOEA [None]
  - PAIN IN EXTREMITY [None]
  - THROMBOSIS [None]
